FAERS Safety Report 8913470 (Version 1)
Quarter: 2012Q4

REPORT INFORMATION
  Report Type: 
  Country: US (occurrence: US)
  Receive Date: 20121119
  Receipt Date: 20121119
  Transmission Date: 20130627
  Serious: No
  Sender: FDA-Public Use
  Company Number: US-009507513-1210USA014007

PATIENT

DRUGS (1)
  1. SINGULAIR [Suspect]
     Route: 048

REACTIONS (8)
  - Adverse drug reaction [Recovering/Resolving]
  - Depression [Recovering/Resolving]
  - Nasal disorder [Recovering/Resolving]
  - Muscle atrophy [Recovering/Resolving]
  - Asthenia [Not Recovered/Not Resolved]
  - Fatigue [Not Recovered/Not Resolved]
  - Mood swings [Recovering/Resolving]
  - Drug ineffective [Unknown]
